FAERS Safety Report 7521610-9 (Version None)
Quarter: 2011Q2

REPORT INFORMATION
  Report Type: 
  Country: None (occurrence: None)
  Receive Date: 20110603
  Receipt Date: 20110519
  Transmission Date: 20111010
  Serious: Yes (Other)
  Sender: FDA-Public Use
  Company Number: US-JNJFOC-20110509888

PATIENT
  Age: 71 Year
  Sex: Female
  Weight: 59.88 kg

DRUGS (4)
  1. XOPENEX [Concomitant]
     Indication: RESPIRATORY DISORDER
     Route: 055
  2. ALLERGY MEDICATION [Concomitant]
     Indication: MULTIPLE ALLERGIES
  3. PRECISE EXTRA STRENGTH PAIN RELIEVING CREAM [Suspect]
     Indication: EPICONDYLITIS
     Dosage: ^SMALL AMOUNT^ ONCE
     Route: 061
     Dates: start: 20110514, end: 20110514
  4. PRECISE EXTRA STRENGTH PAIN RELIEVING CREAM [Suspect]
     Indication: MYALGIA
     Dosage: ^SMALL AMOUNT^ ONCE
     Route: 061
     Dates: start: 20110514, end: 20110514

REACTIONS (1)
  - ANAPHYLACTIC SHOCK [None]
